FAERS Safety Report 22370932 (Version 1)
Quarter: 2023Q2

REPORT INFORMATION
  Report Type: Spontaneous
  Country: US (occurrence: US)
  Receive Date: 20230526
  Receipt Date: 20230526
  Transmission Date: 20230722
  Serious: Yes (Other)
  Sender: FDA-Public Use
  Company Number: US-002147023-NVSC2023US115871

PATIENT
  Sex: Female

DRUGS (4)
  1. LETROZOLE [Suspect]
     Active Substance: LETROZOLE
     Indication: Breast cancer
     Dosage: UNK
     Route: 065
     Dates: start: 202111
  2. LETROZOLE [Suspect]
     Active Substance: LETROZOLE
     Indication: Colon cancer
  3. IBRANCE [Suspect]
     Active Substance: PALBOCICLIB
     Indication: Breast cancer
     Dosage: 100 MG
     Route: 065
     Dates: start: 202111
  4. IBRANCE [Suspect]
     Active Substance: PALBOCICLIB
     Indication: Colon cancer
     Dosage: UNK
     Route: 065
     Dates: start: 202112

REACTIONS (3)
  - Neutropenia [Unknown]
  - Hot flush [Unknown]
  - Arthralgia [Unknown]
